FAERS Safety Report 7812677-9 (Version None)
Quarter: 2011Q4

REPORT INFORMATION
  Report Type: 
  Country: None (occurrence: None)
  Receive Date: 20111013
  Receipt Date: 20110929
  Transmission Date: 20120403
  Serious: Yes (Hospitalization)
  Sender: FDA-Public Use
  Company Number: FR-ELI_LILLY_AND_COMPANY-FR201103000871

PATIENT
  Age: 40 Year
  Sex: Male

DRUGS (4)
  1. ZYPREXA [Suspect]
     Dosage: 20 MG, DAILY (1/D)
     Route: 048
  2. OLANZAPINE [Suspect]
     Indication: SCHIZOPHRENIA
     Dosage: 300 MG, EVRY 15 DAYS
     Route: 030
  3. ZYPREXA [Suspect]
     Dosage: 40 MG, DAILY (1/D)
     Route: 048
  4. ZYPREXA [Suspect]
     Indication: SCHIZOPHRENIA
     Dosage: 30 MG, DAILY (1/D)

REACTIONS (6)
  - INTENTIONAL DRUG MISUSE [None]
  - OVERDOSE [None]
  - SCHIZOPHRENIA [None]
  - MULTIPLE FRACTURES [None]
  - TRAUMATIC LIVER INJURY [None]
  - DELIRIUM [None]
